FAERS Safety Report 10867242 (Version 3)
Quarter: 2016Q2

REPORT INFORMATION
  Report Type: Report from Study
  Country: US (occurrence: US)
  Receive Date: 20150225
  Receipt Date: 20160616
  Transmission Date: 20160815
  Serious: Yes (Other)
  Sender: FDA-Public Use
  Company Number: US-ARIAD PHARMACEUTICALS, INC-2014US004312

PATIENT

DRUGS (3)
  1. ASPIRIN. [Concomitant]
     Active Substance: ASPIRIN
     Indication: PRODUCT USED FOR UNKNOWN INDICATION
     Dosage: 325 MG, QD
  2. ICLUSIG [Suspect]
     Active Substance: PONATINIB
     Indication: CHRONIC MYELOID LEUKAEMIA
     Dosage: 30 MG, QD
     Route: 048
     Dates: end: 20141203
  3. IBUROFEN [Concomitant]
     Indication: PAIN
     Dosage: 200 MG, EVERY 6 HOURS

REACTIONS (7)
  - Chronic obstructive pulmonary disease [Unknown]
  - Carotid artery stenosis [Unknown]
  - Transient ischaemic attack [Unknown]
  - Hemiparesis [Unknown]
  - Abdominal pain [Unknown]
  - Rash [Unknown]
  - Pruritus [Unknown]
